FAERS Safety Report 18334807 (Version 6)
Quarter: 2024Q4

REPORT INFORMATION
  Report Type: Report from Study
  Country: US (occurrence: US)
  Receive Date: 20201001
  Receipt Date: 20241128
  Transmission Date: 20250114
  Serious: Yes (Other)
  Sender: ASTELLAS
  Company Number: US-ASTELLAS-2020US033223

PATIENT
  Age: 75 Year
  Sex: Male

DRUGS (3)
  1. ENZALUTAMIDE [Suspect]
     Active Substance: ENZALUTAMIDE
     Indication: Prostate cancer
     Route: 048
     Dates: start: 20200725
  2. ENZALUTAMIDE [Suspect]
     Active Substance: ENZALUTAMIDE
     Indication: Prostate cancer
     Route: 048
     Dates: start: 202206
  3. ENZALUTAMIDE [Suspect]
     Active Substance: ENZALUTAMIDE
     Route: 048
     Dates: start: 20210510, end: 20220529

REACTIONS (6)
  - Hallucination [Unknown]
  - Back pain [Unknown]
  - Taste disorder [Unknown]
  - Weight decreased [Unknown]
  - Amnesia [Unknown]
  - Pain [Unknown]

NARRATIVE: CASE EVENT DATE: 20200701
